FAERS Safety Report 15718861 (Version 1)
Quarter: 2018Q4

REPORT INFORMATION
  Report Type: Spontaneous
  Country: US (occurrence: US)
  Receive Date: 20181213
  Receipt Date: 20181213
  Transmission Date: 20190205
  Serious: Yes (Other)
  Sender: FDA-Public Use
  Company Number: US-BAYER-2018-231770

PATIENT
  Age: 78 Year
  Sex: Female
  Weight: 60 kg

DRUGS (3)
  1. CORICIDIN HBP COUGH AND COLD [Suspect]
     Active Substance: CHLORPHENIRAMINE MALEATE\DEXTROMETHORPHAN HYDROBROMIDE
     Indication: NASOPHARYNGITIS
  2. CORICIDIN HBP COUGH AND COLD [Suspect]
     Active Substance: CHLORPHENIRAMINE MALEATE\DEXTROMETHORPHAN HYDROBROMIDE
     Indication: HYPERSENSITIVITY
     Dosage: 1 DF, QID
     Route: 048
     Dates: start: 201812
  3. ROSUVASTATIN. [Concomitant]
     Active Substance: ROSUVASTATIN
     Dosage: UNK

REACTIONS (1)
  - Loss of consciousness [Recovered/Resolved]

NARRATIVE: CASE EVENT DATE: 20181202
